FAERS Safety Report 25591226 (Version 1)
Quarter: 2025Q3

REPORT INFORMATION
  Report Type: Spontaneous
  Country: US (occurrence: None)
  Receive Date: 20250721
  Receipt Date: 20250721
  Transmission Date: 20251021
  Serious: Yes (Other)
  Sender: FDA-CTU
  Company Number: None

PATIENT
  Age: 64 Year
  Sex: Male
  Weight: 102.06 kg

DRUGS (17)
  1. ELIQUIS [Suspect]
     Active Substance: APIXABAN
     Indication: Atrial fibrillation
     Dosage: FREQUENCY : TWICE A DAY;?
     Route: 048
     Dates: start: 20250402, end: 20250702
  2. ALBUTEROL SULFATE [Concomitant]
     Active Substance: ALBUTEROL SULFATE
  3. ARIPIPRAZOLE [Concomitant]
     Active Substance: ARIPIPRAZOLE
  4. ATORVASTATIN [Concomitant]
     Active Substance: ATORVASTATIN
  5. Vitamin D3 1000IU [Concomitant]
  6. Dapagliflozin 5mg [Concomitant]
  7. ESOMEPRAZOLE [Concomitant]
     Active Substance: ESOMEPRAZOLE
  8. FAMOTIDINE [Concomitant]
     Active Substance: FAMOTIDINE
  9. Amuity Inhaler 200mcg [Concomitant]
  10. GABAPENTIN [Concomitant]
     Active Substance: GABAPENTIN
  11. METFORMIN HYDROCHLORIDE [Concomitant]
     Active Substance: METFORMIN HYDROCHLORIDE
  12. METHOCARBAMOL [Concomitant]
     Active Substance: METHOCARBAMOL
  13. Metoprolol XL 25mg [Concomitant]
  14. Potassium 10mEq tab [Concomitant]
  15. Entresto 24-26mg [Concomitant]
  16. SERTRALINE [Concomitant]
     Active Substance: SERTRALINE HYDROCHLORIDE
  17. TORSEMIDE [Concomitant]
     Active Substance: TORSEMIDE

REACTIONS (1)
  - Petechiae [None]

NARRATIVE: CASE EVENT DATE: 20250702
